FAERS Safety Report 9272005 (Version 2)
Quarter: 2013Q3

REPORT INFORMATION
  Report Type: Spontaneous
  Country: PL (occurrence: PL)
  Receive Date: 20130506
  Receipt Date: 20130802
  Transmission Date: 20140515
  Serious: Yes (Other)
  Sender: FDA-Public Use
  Company Number: PL-AMGEN-POLSP2013031410

PATIENT
  Age: 41 Year
  Sex: Female
  Weight: 85 kg

DRUGS (3)
  1. ENBREL [Suspect]
     Indication: RHEUMATOID ARTHRITIS
     Dosage: 50 MG, UNK
     Route: 058
     Dates: start: 20130129, end: 20130326
  2. METHOTREXATE [Concomitant]
     Indication: RHEUMATOID ARTHRITIS
     Dosage: IN A WEEK DOSE 25 MG
     Route: 048
     Dates: start: 20000222
  3. METYPRED                           /00049601/ [Concomitant]
     Indication: RHEUMATOID ARTHRITIS
     Dosage: 16 MG
     Route: 048
     Dates: start: 19951012

REACTIONS (2)
  - Injection site extravasation [Recovered/Resolved]
  - Injection site oedema [Recovered/Resolved]
